FAERS Safety Report 5048195-3 (Version None)
Quarter: 2006Q3

REPORT INFORMATION
  Report Type: 
  Country: None (occurrence: None)
  Receive Date: 20060711
  Receipt Date: 20060704
  Transmission Date: 20061208
  Serious: Yes (Other)
  Sender: FDA-Public Use
  Company Number: GR-ROCHE-454315

PATIENT
  Sex: Female

DRUGS (1)
  1. BONIVA [Suspect]
     Indication: OSTEOPOROSIS
     Route: 048
     Dates: start: 20060702

REACTIONS (4)
  - ARRHYTHMIA [None]
  - CHILLS [None]
  - INFLUENZA LIKE ILLNESS [None]
  - PYREXIA [None]
